FAERS Safety Report 14370431 (Version 2)
Quarter: 2018Q4

REPORT INFORMATION
  Report Type: Spontaneous
  Country: DE (occurrence: DE)
  Receive Date: 20180110
  Receipt Date: 20181029
  Transmission Date: 20190204
  Serious: Yes (Other)
  Sender: FDA-Public Use
  Company Number: DE-AXELLIA-001289

PATIENT
  Age: 16 Year
  Sex: Male

DRUGS (1)
  1. VORICONAZOLE. [Suspect]
     Active Substance: VORICONAZOLE
     Indication: ANTIFUNGAL PROPHYLAXIS
     Dosage: LONG-TERM
     Route: 065

REACTIONS (5)
  - Solar lentigo [Recovered/Resolved]
  - Skin hyperpigmentation [Recovered/Resolved]
  - Skin lesion [Recovered/Resolved]
  - Hyperkeratosis [Recovered/Resolved]
  - Squamous cell carcinoma of skin [Recovered/Resolved]
